FAERS Safety Report 10092327 (Version 1)
Quarter: 2014Q2

REPORT INFORMATION
  Report Type: Spontaneous
  Country: US (occurrence: US)
  Receive Date: 20140421
  Receipt Date: 20140421
  Transmission Date: 20141212
  Serious: No
  Sender: FDA-Public Use
  Company Number: US-SANOFI-AVENTIS-2013SA038803

PATIENT
  Age: 55 Year
  Sex: Female

DRUGS (2)
  1. ALLEGRA [Suspect]
     Indication: HEADACHE
     Dates: start: 20130331
  2. IBUPROFEN [Suspect]

REACTIONS (3)
  - Sinusitis [Not Recovered/Not Resolved]
  - Drug ineffective [Unknown]
  - Cough [Not Recovered/Not Resolved]
